FAERS Safety Report 6959422-7 (Version None)
Quarter: 2010Q3

REPORT INFORMATION
  Report Type: 
  Country: None (occurrence: None)
  Receive Date: 20100831
  Receipt Date: 20100820
  Transmission Date: 20110219
  Serious: Yes (Other)
  Sender: FDA-Public Use
  Company Number: ES-GENENTECH-305757

PATIENT
  Age: 38 Year
  Sex: Male

DRUGS (5)
  1. RITUXIMAB [Suspect]
     Indication: B-CELL LYMPHOMA
     Dosage: UNK
     Route: 042
     Dates: start: 20100519, end: 20100519
  2. METHOTREXATE [Suspect]
     Indication: B-CELL LYMPHOMA
     Dosage: UNK MG, UNK
     Route: 042
     Dates: start: 20100519, end: 20100519
  3. CYTARABINE [Suspect]
     Indication: B-CELL LYMPHOMA
     Dosage: 500 MG, Q12H
     Route: 042
     Dates: start: 20100520, end: 20100521
  4. ATORVASTATIN CALCIUM [Suspect]
     Indication: HYPERLIPIDAEMIA
     Dosage: UNK
     Route: 048
     Dates: start: 20000101, end: 20100525
  5. FASTURTEC [Suspect]
     Indication: B-CELL LYMPHOMA
     Dosage: UNK
     Route: 042
     Dates: start: 20100519, end: 20100519

REACTIONS (1)
  - HEPATOTOXICITY [None]
